FAERS Safety Report 8311686-3 (Version None)
Quarter: 2012Q1

REPORT INFORMATION
  Report Type: 
  Country: None (occurrence: None)
  Receive Date: 20120315
  Receipt Date: 20110614
  Transmission Date: 20120608
  Serious: No
  Sender: FDA-Public Use
  Company Number: PHHY2011US46948

PATIENT
  Age: 57 Year
  Sex: Female
  Weight: 69.9 kg

DRUGS (7)
  1. ZANAFLEX [Concomitant]
  2. GILENYA [Suspect]
     Indication: MULTIPLE SCLEROSIS
     Dosage: 0.5 MG, DAILY, ORAL
     Route: 048
     Dates: start: 20110526
  3. XYLENOL (XYLENOL) [Concomitant]
  4. XANAX [Concomitant]
  5. IBUPROFEN [Concomitant]
  6. BACLOFEN [Concomitant]
  7. AMBIEN [Concomitant]

REACTIONS (1)
  - ABDOMINAL DISCOMFORT [None]
